FAERS Safety Report 8268154-7 (Version None)
Quarter: 2012Q2

REPORT INFORMATION
  Report Type: 
  Country: None (occurrence: None)
  Receive Date: 20120409
  Receipt Date: 20120403
  Transmission Date: 20120825
  Serious: No
  Sender: FDA-Public Use
  Company Number: US-PFIZER INC-2012085457

PATIENT
  Sex: Female

DRUGS (2)
  1. MIRALAX [Suspect]
     Dosage: UNK
     Route: 048
  2. IBUPROFEN (ADVIL) [Suspect]
     Dosage: UNK

REACTIONS (5)
  - SWELLING [None]
  - LIP SWELLING [None]
  - APHTHOUS STOMATITIS [None]
  - PRURITUS [None]
  - BURNING SENSATION [None]
